FAERS Safety Report 8250052-6 (Version None)
Quarter: 2012Q2

REPORT INFORMATION
  Report Type: 
  Country: None (occurrence: None)
  Receive Date: 20120402
  Receipt Date: 20120329
  Transmission Date: 20120825
  Serious: Yes (Death)
  Sender: FDA-Public Use
  Company Number: JP-SANOFI-AVENTIS-2012SA012562

PATIENT
  Age: 64 Year
  Sex: Male
  Weight: 83 kg

DRUGS (18)
  1. OXALIPLATIN [Suspect]
     Route: 041
     Dates: start: 20111028
  2. ALOXI [Concomitant]
     Indication: PREMEDICATION
     Route: 041
     Dates: start: 20110916, end: 20120203
  3. SHAKUYAKUKANZOUTOU [Concomitant]
     Indication: HICCUPS
     Route: 048
     Dates: start: 20110916, end: 20120203
  4. MAGNESIUM OXIDE [Concomitant]
     Indication: CONSTIPATION
     Route: 048
     Dates: start: 20110916, end: 20120203
  5. OXALIPLATIN [Suspect]
     Route: 041
     Dates: start: 20111122
  6. DEXAMETHASONE SODIUM PHOSPHATE [Concomitant]
     Indication: PREMEDICATION
     Route: 041
     Dates: start: 20110916, end: 20120203
  7. BETAMETHASONE [Concomitant]
     Indication: NAUSEA
     Route: 048
     Dates: start: 20110917, end: 20120115
  8. OXALIPLATIN [Suspect]
     Indication: COLON CANCER
     Dosage: DOSE:164.1 MG/BODY
     Route: 041
     Dates: start: 20110916
  9. NEUTROGIN [Concomitant]
     Indication: NEUTROPHIL COUNT DECREASED
     Route: 058
     Dates: start: 20111006, end: 20111117
  10. FLUOROURACIL [Concomitant]
     Route: 040
     Dates: start: 20110916, end: 20120203
  11. AVASTIN [Concomitant]
     Indication: COLON CANCER
     Route: 041
     Dates: start: 20110916, end: 20120203
  12. PRIMPERAN TAB [Concomitant]
     Indication: NAUSEA
     Route: 048
     Dates: start: 20110917, end: 20120115
  13. OXALIPLATIN [Suspect]
     Route: 041
     Dates: start: 20110203
  14. LEUCOVORIN CALCIUM [Concomitant]
     Indication: COLON CANCER
     Route: 041
     Dates: start: 20110916, end: 20120203
  15. FLUOROURACIL [Concomitant]
     Indication: COLON CANCER
     Route: 041
     Dates: start: 20110916, end: 20120203
  16. EMEND [Concomitant]
     Indication: NAUSEA
     Dosage: 125-80-125-80-125-80-125-80-125-80-125-80-125MG
     Route: 048
     Dates: start: 20110916, end: 20120203
  17. LEUCON [Concomitant]
     Indication: NEUTROPHIL COUNT DECREASED
     Route: 048
     Dates: start: 20110916, end: 20120203
  18. CEPHARANTHIN [Concomitant]
     Indication: NEUTROPHIL COUNT DECREASED
     Route: 048
     Dates: start: 20110916, end: 20120203

REACTIONS (8)
  - DEPRESSED LEVEL OF CONSCIOUSNESS [None]
  - DECREASED APPETITE [None]
  - CARDIO-RESPIRATORY ARREST [None]
  - NAUSEA [None]
  - ABDOMINAL PAIN [None]
  - ANAPHYLACTIC SHOCK [None]
  - NEUTROPENIA [None]
  - FALL [None]
